FAERS Safety Report 23153136 (Version 1)
Quarter: 2023Q4

REPORT INFORMATION
  Report Type: Spontaneous
  Country: CN (occurrence: None)
  Receive Date: 20231107
  Receipt Date: 20231107
  Transmission Date: 20240110
  Serious: Yes (Hospitalization, Other)
  Sender: FDA-Public Use
  Company Number: CN-ROCHE-3451209

PATIENT
  Age: 65 Year
  Sex: Male

DRUGS (5)
  1. MABTHERA [Suspect]
     Active Substance: RITUXIMAB
     Indication: Diffuse large B-cell lymphoma
     Dosage: 16-AUG-2023, 09-SEP-2023, 28-SEP-2023, 20-OCT-2023
     Route: 041
     Dates: start: 20230816
  2. DEXAMETHASONE SODIUM PHOSPHATE [Suspect]
     Active Substance: DEXAMETHASONE SODIUM PHOSPHATE
     Indication: Diffuse large B-cell lymphoma
     Dosage: 16-AUG-2023, 09-SEP-2023, 28-SEP-2023, 20-OCT-2023
     Route: 041
     Dates: start: 20230816
  3. CYCLOPHOSPHAMIDE [Suspect]
     Active Substance: CYCLOPHOSPHAMIDE
     Indication: Diffuse large B-cell lymphoma
     Dosage: 09-SEP-2023, 28-SEP-2023, 20-OCT-2023
     Route: 042
     Dates: start: 20230816
  4. VINDESINE SULFATE [Suspect]
     Active Substance: VINDESINE SULFATE
     Indication: Diffuse large B-cell lymphoma
     Dosage: 16-AUG-2023, 09-SEP-2023, 28-SEP-2023, 20-OCT-2023
     Route: 042
     Dates: start: 20230816
  5. DOXORUBICIN HYDROCHLORIDE [Suspect]
     Active Substance: DOXORUBICIN HYDROCHLORIDE
     Indication: Diffuse large B-cell lymphoma
     Dosage: 16-AUG-2023, 09-SEP-2023, 28-SEP-2023, 20-OCT-2023
     Route: 041
     Dates: start: 20230816

REACTIONS (3)
  - Gastrointestinal perforation [Unknown]
  - Agranulocytosis [Unknown]
  - Pyrexia [Unknown]

NARRATIVE: CASE EVENT DATE: 20231023
